FAERS Safety Report 20933182 (Version 1)
Quarter: 2022Q2

REPORT INFORMATION
  Report Type: Spontaneous
  Country: CH (occurrence: CH)
  Receive Date: 20220608
  Receipt Date: 20220608
  Transmission Date: 20220721
  Serious: Yes (Other)
  Sender: FDA-Public Use
  Company Number: None

PATIENT
  Age: 76 Year
  Sex: Male

DRUGS (14)
  1. PHENPROCOUMON [Suspect]
     Active Substance: PHENPROCOUMON
     Indication: Angiodysplasia
     Dosage: 3 MILLIGRAM, QD- (MARCOUMAR (PHENPROCOUMON) 3MG PER ORAL (P.O.); INR ZIELBEREICH 1.8-2)
     Route: 048
  2. SERTRALINE [Suspect]
     Active Substance: SERTRALINE HYDROCHLORIDE
     Indication: Depression
     Dosage: 50 MILLIGRAM, QD (SERTRALINE (SERTRALIN) 50MG, P.O. (1-0-0-0)
     Route: 048
  3. ALDACTONE [Suspect]
     Active Substance: SPIRONOLACTONE
     Indication: Oedema
     Dosage: 25 MILLIGRAM, QD (ALDACTONE (SPIRONOLACTONE) 25MG P.O. (0-1-0-0)
     Route: 048
  4. EUTHYROX [Suspect]
     Active Substance: LEVOTHYROXINE SODIUM
     Indication: Hypothyroidism
     Dosage: 100 MICROGRAM, QD (EUTHYROX (LEVOTHYROXIN NATRIUM) 100MCG, EUTHYROX? F?R HYPOTHYREOSE)
     Route: 048
  5. PHYTONADIONE [Concomitant]
     Active Substance: PHYTONADIONE
     Dosage: 1 DOSAGE FORM (KONAKION MM INJ. LSG. (PHYTOMENADION (VITAMIN K1))10MG/1ML; P.O. (1-0-0-0))
     Route: 048
  6. CARVEDILOL [Concomitant]
     Active Substance: CARVEDILOL
     Dosage: 3.125 MILLIGRAM BID (12 HOUR)
     Route: 048
  7. TORSEMIDE [Concomitant]
     Active Substance: TORSEMIDE
     Dosage: 100 MILLIGRAM, QD
     Route: 048
  8. METOLAZONE [Concomitant]
     Active Substance: METOLAZONE
     Dosage: 5 MILLIGRAM, QD (METOLAZON GALEPHARM? (METALOZON) 5MG; P.O. (0-1-0-0))
     Route: 048
  9. TAMSULOSIN HYDROCHLORIDE [Concomitant]
     Active Substance: TAMSULOSIN HYDROCHLORIDE
     Dosage: 0.4 MILLIGRAM, QD (TAMSULOSIN SANDOZ ECO? RET. KAPS. (TAMSULOSIN) 0.4 MG; P.O. (0-1-0-0))
     Route: 048
  10. KCL HAUSMANN [Concomitant]
     Dosage: 10 MILLIMOLE 12 HOUR (KCI RETARD HAUSMANN? DRAG. (KALIUM) 10MMOL; P.O. (1-0-1-0))
     Route: 048
  11. MAGNESIUM [Concomitant]
     Active Substance: MAGNESIUM
     Dosage: 600 MILLIGRAM, QD (MAGNESIUM DIASPORAL? GRAN. (MAGNESIUM) 300MG (12.4MMOL); P.O. (2-0-0-0))
     Route: 048
  12. MINERAL OIL [Concomitant]
     Active Substance: MINERAL OIL
     Dosage: 1 DOSAGE FORM, QD (PARAGOL N EMULSION (PARAFFIN); P.O. (20-0-20-0)
     Route: 048
  13. PANTOPRAZOLE SODIUM [Concomitant]
     Active Substance: PANTOPRAZOLE SODIUM
     Dosage: 40 MILLIGRAM, QD ( P.O. (0-0-1-0) )
     Route: 048
  14. OXAZEPAM [Concomitant]
     Active Substance: OXAZEPAM
     Dosage: 15 MILLIGRAM, QD 9P.O. (0-0-0-1))
     Route: 048

REACTIONS (1)
  - Gastrointestinal haemorrhage [Not Recovered/Not Resolved]

NARRATIVE: CASE EVENT DATE: 20220101
